FAERS Safety Report 8749686 (Version 2)
Quarter: 2013Q1

REPORT INFORMATION
  Report Type: Spontaneous
  Country: JP (occurrence: None)
  Receive Date: 20120808
  Receipt Date: 20121020
  Transmission Date: 20140127
  Serious: Yes (Hospitalization)
  Sender: FDA-Public Use
  Company Number: DSJ-2012-13595

PATIENT
  Age: 78 Year
  Sex: Male
  Weight: 58.1 kg

DRUGS (8)
  1. OLMESARTAN MEDOXOMIL [Suspect]
     Indication: ESSENTIAL HYPERTENSION
     Dosage: 40 MG, PER ORAL
     Route: 048
     Dates: start: 20100601, end: 20111228
  2. AVAPRO [Concomitant]
  3. CARVEDILOL [Concomitant]
  4. LASIX [Concomitant]
  5. NOVOLOG [Concomitant]
  6. NATEGLINIDE [Concomitant]
  7. BASEN OD (VOGLIBOSE) [Concomitant]
  8. ADALAT-CR (NIFEDIPINE) (NIFEDIPINE) [Concomitant]

REACTIONS (2)
  - Hyperkalaemia [None]
  - Sick sinus syndrome [None]
